FAERS Safety Report 10970965 (Version 1)
Quarter: 2015Q1

REPORT INFORMATION
  Report Type: Spontaneous
  Country: US (occurrence: US)
  Receive Date: 20150331
  Receipt Date: 20150331
  Transmission Date: 20150721
  Serious: Yes (Hospitalization)
  Sender: FDA-Public Use
  Company Number: PHEH2015US005702

PATIENT
  Age: 60 Year
  Sex: Female

DRUGS (1)
  1. GILENYA [Suspect]
     Active Substance: FINGOLIMOD HYDROCHLORIDE
     Indication: RELAPSING-REMITTING MULTIPLE SCLEROSIS
     Dosage: 0.5 MG, QD
     Route: 048

REACTIONS (7)
  - Cavernous sinus thrombosis [Unknown]
  - Jugular vein thrombosis [Unknown]
  - Sinusitis [Unknown]
  - Horner^s syndrome [Unknown]
  - Intracranial venous sinus thrombosis [Unknown]
  - Staphylococcal bacteraemia [Unknown]
  - Cellulitis orbital [Unknown]

NARRATIVE: CASE EVENT DATE: 20141222
